FAERS Safety Report 6547882-5 (Version None)
Quarter: 2010Q1

REPORT INFORMATION
  Report Type: 
  Country: None (occurrence: None)
  Receive Date: 20100124
  Receipt Date: 20091111
  Transmission Date: 20100710
  Serious: No
  Sender: FDA-Public Use
  Company Number: US-ALEXION-A200900953

PATIENT
  Sex: Female

DRUGS (9)
  1. SOLIRIS [Suspect]
     Indication: PAROXYSMAL NOCTURNAL HAEMOGLOBINURIA
     Dosage: 600 MG, QW
     Route: 042
     Dates: start: 20090601, end: 20090101
  2. SOLIRIS [Suspect]
     Dosage: 900 MG, Q2W
     Route: 042
     Dates: start: 20090101
  3. MULTIVITAMIN                       /00831701/ [Concomitant]
  4. PROGRAF [Concomitant]
     Indication: TRANSPLANT
     Dosage: 3 MG, BID
  5. LOPRESSOR [Concomitant]
     Dosage: 25 MG, BID
  6. COLA [Concomitant]
     Dosage: 1 TAB, BID
  7. COUMADIN [Concomitant]
     Dosage: 9 MG, QD
  8. PROTONIX                           /01263201/ [Concomitant]
     Dosage: 40 MG, QD
  9. URSODIOL [Concomitant]
     Dosage: 300 MG, TID

REACTIONS (1)
  - IMPAIRED HEALING [None]
